FAERS Safety Report 8353743-1 (Version None)
Quarter: 2012Q2

REPORT INFORMATION
  Report Type: 
  Country: None (occurrence: None)
  Receive Date: 20120511
  Receipt Date: 20111014
  Transmission Date: 20120825
  Serious: No
  Sender: FDA-Public Use
  Company Number: US-GLAXOSMITHKLINE-A0949152A

PATIENT
  Age: 54 Year
  Sex: Female

DRUGS (3)
  1. XELODA [Suspect]
     Route: 065
     Dates: start: 20110801
  2. HRT [Concomitant]
  3. TYKERB [Suspect]
     Indication: BREAST CANCER
     Dosage: 5TAB PER DAY
     Route: 048
     Dates: start: 20110801

REACTIONS (4)
  - BLISTER [None]
  - SKIN CHAPPED [None]
  - NAUSEA [None]
  - ERYTHEMA [None]
